FAERS Safety Report 5849667-1 (Version None)
Quarter: 2008Q3

REPORT INFORMATION
  Report Type: 
  Country: None (occurrence: None)
  Receive Date: 20080818
  Receipt Date: 20080818
  Transmission Date: 20090109
  Serious: Yes (Life-Threatening)
  Sender: FDA-Public Use
  Company Number: None

PATIENT
  Age: 22 Year
  Sex: Female
  Weight: 61.2356 kg

DRUGS (1)
  1. AMNESTEEM [Suspect]
     Indication: ACNE
     Dosage: 1 CAPSULE ONCE A DAY PO
     Route: 048
     Dates: start: 20080315, end: 20080816

REACTIONS (3)
  - ANXIETY [None]
  - EMOTIONAL DISTRESS [None]
  - PANIC ATTACK [None]
